FAERS Safety Report 12327173 (Version 3)
Quarter: 2017Q1

REPORT INFORMATION
  Report Type: Report from Study
  Country: BR (occurrence: BR)
  Receive Date: 20160503
  Receipt Date: 20170313
  Transmission Date: 20170428
  Serious: Yes (Other)
  Sender: FDA-Public Use
  Company Number: PHHY2015BR116347

PATIENT
  Sex: Female
  Weight: 100 kg

DRUGS (4)
  1. CABERGOLINE. [Concomitant]
     Active Substance: CABERGOLINE
     Indication: ACROMEGALY
     Dosage: 0.5 MG, QOD
     Route: 065
  2. SANDOSTATIN LAR DEPOT [Suspect]
     Active Substance: OCTREOTIDE ACETATE
     Dosage: 20 MG, QMO (EVERY 28 DAYS)
     Route: 030
     Dates: start: 201508
  3. SANDOSTATIN LAR DEPOT [Suspect]
     Active Substance: OCTREOTIDE ACETATE
     Indication: ACROMEGALY
     Dosage: 20 MG, QMO (EVERY 28 DAYS)
     Route: 030
     Dates: start: 2006
  4. SANDOSTATIN LAR DEPOT [Suspect]
     Active Substance: OCTREOTIDE ACETATE
     Dosage: 30 MG, UNK
     Route: 030

REACTIONS (14)
  - Memory impairment [Unknown]
  - Disturbance in attention [Unknown]
  - Concomitant disease aggravated [Unknown]
  - Weight increased [Unknown]
  - Arrhythmia [Unknown]
  - Body height decreased [Unknown]
  - Ocular discomfort [Unknown]
  - Apathy [Unknown]
  - Cardiomegaly [Unknown]
  - Sleep disorder [Unknown]
  - Scab [Unknown]
  - Weight decreased [Unknown]
  - Fatigue [Unknown]
  - Alopecia [Unknown]
